FAERS Safety Report 14367817 (Version 1)
Quarter: 2018Q1

REPORT INFORMATION
  Report Type: Spontaneous
  Country: US (occurrence: US)
  Receive Date: 20180109
  Receipt Date: 20180109
  Transmission Date: 20180509
  Serious: No
  Sender: FDA-Public Use
  Company Number: US-PERRIGO-17US001180

PATIENT
  Sex: Male

DRUGS (3)
  1. BETAMETHASONE VALERATE. [Suspect]
     Active Substance: BETAMETHASONE VALERATE
     Indication: DERMATITIS
     Dosage: 1 APPLICATION TO BACK, UNKNOWN
     Route: 061
     Dates: start: 201612, end: 201612
  2. BETAMETHASONE VALERATE. [Suspect]
     Active Substance: BETAMETHASONE VALERATE
     Indication: ACNE
  3. BETAMETHASONE VALERATE. [Suspect]
     Active Substance: BETAMETHASONE VALERATE
     Indication: DANDRUFF
     Dosage: 1 APPLICATION TO SCALP, QD, PRN
     Route: 061
     Dates: start: 201612, end: 201612

REACTIONS (5)
  - Wrong technique in product usage process [Recovered/Resolved]
  - Inappropriate schedule of drug administration [Recovered/Resolved]
  - Eye pain [Recovered/Resolved]
  - Accidental exposure to product [Recovered/Resolved]
  - Product administered at inappropriate site [Recovered/Resolved]

NARRATIVE: CASE EVENT DATE: 201612
